FAERS Safety Report 11446943 (Version 1)
Quarter: 2015Q3

REPORT INFORMATION
  Report Type: Spontaneous
  Country: US (occurrence: US)
  Receive Date: 20150831
  Receipt Date: 20150831
  Transmission Date: 20151125
  Serious: No
  Sender: FDA-Public Use
  Company Number: US-ELI_LILLY_AND_COMPANY-US200902000221

PATIENT
  Sex: Female

DRUGS (1)
  1. CYMBALTA [Suspect]
     Active Substance: DULOXETINE HYDROCHLORIDE
     Indication: NEURALGIA
     Dosage: 60 MG, UNK
     Dates: start: 2007

REACTIONS (10)
  - Hyperhidrosis [Unknown]
  - Tremor [Unknown]
  - Muscle spasms [Unknown]
  - Tinnitus [Recovered/Resolved]
  - Dyskinesia [Unknown]
  - Pain in extremity [Recovering/Resolving]
  - Feeling abnormal [Unknown]
  - Crying [Unknown]
  - Screaming [Unknown]
  - Hallucination [Not Recovered/Not Resolved]
